FAERS Safety Report 21655480 (Version 1)
Quarter: 2022Q4

REPORT INFORMATION
  Report Type: Spontaneous
  Country: US (occurrence: US)
  Receive Date: 20221129
  Receipt Date: 20221129
  Transmission Date: 20230113
  Serious: No
  Sender: FDA-Public Use
  Company Number: US-APOTEX-2022AP012949

PATIENT
  Sex: Male

DRUGS (5)
  1. ATROPINE SULFATE [Suspect]
     Active Substance: ATROPINE SULFATE
     Indication: Product used for unknown indication
     Dosage: 1 GTT DROPS, QID
     Route: 047
     Dates: end: 20220702
  2. PREDNISOLONE ACETATE [Concomitant]
     Active Substance: PREDNISOLONE ACETATE
     Indication: Eye swelling
     Dosage: 1 GTT DROPS, QID, 1ST WEEK
     Route: 047
  3. PREDNISOLONE ACETATE [Concomitant]
     Active Substance: PREDNISOLONE ACETATE
     Indication: Eye inflammation
     Dosage: 1 GTT DROPS, TID, 2ND WEEK
     Route: 047
  4. PREDNISOLONE ACETATE [Concomitant]
     Active Substance: PREDNISOLONE ACETATE
     Dosage: 1 GTT DROPS, BID, 3RD WEEK
     Route: 047
  5. PREDNISOLONE ACETATE [Concomitant]
     Active Substance: PREDNISOLONE ACETATE
     Dosage: 1 GTT DROPS, QD, 4TH WEEK
     Route: 047

REACTIONS (3)
  - Mydriasis [Not Recovered/Not Resolved]
  - Inappropriate schedule of product administration [Unknown]
  - Product communication issue [Unknown]
